FAERS Safety Report 9766636 (Version 2)
Quarter: 2014Q4

REPORT INFORMATION
  Report Type: Spontaneous
  Country: US (occurrence: US)
  Receive Date: 20131217
  Receipt Date: 20141217
  Transmission Date: 20150529
  Serious: No
  Sender: FDA-Public Use
  Company Number: US-GLAXOSMITHKLINE-A1029314A

PATIENT
  Age: 58 Year
  Sex: Female

DRUGS (2)
  1. VOTRIENT [Suspect]
     Active Substance: PAZOPANIB HYDROCHLORIDE
     Indication: HEPATIC CANCER
     Dosage: 200 MG TABLETS TAKE 4 TABLETS OR 800 MG DAILY
     Route: 048
     Dates: start: 2013
  2. VOTRIENT [Suspect]
     Active Substance: PAZOPANIB HYDROCHLORIDE
     Indication: RENAL CANCER
     Dates: start: 2013

REACTIONS (12)
  - Hair colour changes [Unknown]
  - Vomiting [Recovering/Resolving]
  - Oropharyngeal pain [Recovered/Resolved]
  - Therapeutic response decreased [Unknown]
  - Tongue ulceration [Recovered/Resolved]
  - Blood pressure increased [Unknown]
  - Nausea [Recovering/Resolving]
  - Dyspnoea [Unknown]
  - Neck pain [Unknown]
  - Drug tolerance [Unknown]
  - Chest discomfort [Unknown]
  - Chest pain [Unknown]

NARRATIVE: CASE EVENT DATE: 201306
